FAERS Safety Report 10913691 (Version 2)
Quarter: 2015Q3

REPORT INFORMATION
  Report Type: Spontaneous
  Country: DE (occurrence: DE)
  Receive Date: 20150313
  Receipt Date: 20150713
  Transmission Date: 20151125
  Serious: Yes (Life-Threatening, Hospitalization, Disabling)
  Sender: FDA-Public Use
  Company Number: DE-BAYER-2015-035579

PATIENT
  Age: 65 Year
  Sex: Male
  Weight: 92 kg

DRUGS (2)
  1. XOFIGO [Suspect]
     Active Substance: RADIUM RA-223 DICHLORIDE
     Indication: PROSTATE CANCER METASTATIC
     Dosage: 4.75 MBQ, UNK
     Route: 042
     Dates: start: 20150128
  2. XTANDI [Concomitant]
     Active Substance: ENZALUTAMIDE

REACTIONS (6)
  - Leukopenia [None]
  - Paraparesis [Not Recovered/Not Resolved]
  - Thrombocytopenia [None]
  - Bone marrow failure [Not Recovered/Not Resolved]
  - Anaemia [None]
  - Hormone-refractory prostate cancer [Not Recovered/Not Resolved]

NARRATIVE: CASE EVENT DATE: 20150211
